FAERS Safety Report 22250999 (Version 1)
Quarter: 2023Q2

REPORT INFORMATION
  Report Type: Spontaneous
  Country: US (occurrence: US)
  Receive Date: 20230425
  Receipt Date: 20230425
  Transmission Date: 20230722
  Serious: No
  Sender: FDA-Public Use
  Company Number: US-UPSHER-SMITH LABORATORIES, LLC-2023USL00040

PATIENT
  Age: 17 Year
  Sex: Male

DRUGS (4)
  1. ISOTRETINOIN [Suspect]
     Active Substance: ISOTRETINOIN
     Indication: Acne
     Dosage: 40 MG, 2X/DAY
     Route: 048
     Dates: start: 20221012, end: 20230112
  2. ZINC SULFATE [Concomitant]
     Active Substance: ZINC SULFATE
     Dosage: 220 MG, 2X/DAY
     Route: 048
  3. CLINDAMYCIN AND BENZOYL PEROXIDE [Concomitant]
     Active Substance: BENZOYL PEROXIDE\CLINDAMYCIN PHOSPHATE
     Dosage: UNK, EVERY MORNING
     Route: 061
  4. METRONIDAZOLE SODIUM [Concomitant]
     Active Substance: METRONIDAZOLE SODIUM
     Dosage: UNK, AT BEDTIME
     Route: 061

REACTIONS (1)
  - Blood triglycerides increased [Not Recovered/Not Resolved]

NARRATIVE: CASE EVENT DATE: 20221227
